FAERS Safety Report 18779827 (Version 1)
Quarter: 2021Q1

REPORT INFORMATION
  Report Type: Spontaneous
  Country: US (occurrence: US)
  Receive Date: 20210125
  Receipt Date: 20210125
  Transmission Date: 20210419
  Serious: No
  Sender: FDA-Public Use
  Company Number: US-VISTAPHARM, INC.-VER202101-000531

PATIENT
  Sex: Female
  Weight: 88.45 kg

DRUGS (1)
  1. NYSTATIN ORAL  SUSPENSION, USP  100,000 UNITS PER ML CONTAINS ALCOHOL [Suspect]
     Active Substance: NYSTATIN
     Indication: PRODUCT USED FOR UNKNOWN INDICATION
     Dosage: UNKNOWN

REACTIONS (2)
  - Therapeutic product effect decreased [Unknown]
  - Product expiration date issue [Unknown]
